FAERS Safety Report 10973687 (Version 5)
Quarter: 2016Q2

REPORT INFORMATION
  Report Type: Spontaneous
  Country: US (occurrence: US)
  Receive Date: 20150401
  Receipt Date: 20160626
  Transmission Date: 20160815
  Serious: Yes (Hospitalization, Other)
  Sender: FDA-Public Use
  Company Number: US-MERCK-1503USA015021

PATIENT
  Sex: Male

DRUGS (4)
  1. PROSCAR [Suspect]
     Active Substance: FINASTERIDE
     Indication: PROSTATOMEGALY
     Dosage: 5 MG, UNKNOWN
     Route: 048
     Dates: start: 2004, end: 2006
  2. DYAZIDE [Concomitant]
     Active Substance: HYDROCHLOROTHIAZIDE\TRIAMTERENE
     Indication: PRODUCT USED FOR UNKNOWN INDICATION
     Dosage: UNK, UNKNOWN
     Route: 065
     Dates: start: 1980
  3. FLOMAX [Concomitant]
     Active Substance: TAMSULOSIN HYDROCHLORIDE
     Indication: PROSTATOMEGALY
     Dosage: 0.04 MG, QD
     Route: 065
     Dates: start: 200509, end: 201104
  4. TRIAMTERENE. [Concomitant]
     Active Substance: TRIAMTERENE
     Indication: HYPERTENSION
     Dosage: UNK, UNKNOWN
     Route: 065
     Dates: start: 199809

REACTIONS (19)
  - Aortic valve stenosis [Unknown]
  - Prostatic operation [Unknown]
  - Anxiety [Unknown]
  - Erythema [Unknown]
  - Gynaecomastia [Unknown]
  - Skin oedema [Recovered/Resolved]
  - Chest discomfort [Unknown]
  - Breast cancer stage II [Not Recovered/Not Resolved]
  - Cardiac disorder [Unknown]
  - Dementia [Unknown]
  - Hypercholesterolaemia [Unknown]
  - Hernia [Unknown]
  - Fatigue [Unknown]
  - Umbilical hernia [Not Recovered/Not Resolved]
  - Benign prostatic hyperplasia [Unknown]
  - Urinary incontinence [Unknown]
  - Lethargy [Unknown]
  - Musculoskeletal discomfort [Unknown]
  - Oedema peripheral [Unknown]

NARRATIVE: CASE EVENT DATE: 200607
